FAERS Safety Report 9671035 (Version 1)
Quarter: 2013Q4

REPORT INFORMATION
  Report Type: Spontaneous
  Country: US (occurrence: US)
  Receive Date: 20131106
  Receipt Date: 20131106
  Transmission Date: 20140711
  Serious: No
  Sender: FDA-Public Use
  Company Number: US-BAYER-2013-134877

PATIENT
  Age: 57 Year
  Sex: Female
  Weight: 92 kg

DRUGS (3)
  1. ALEVE CAPLET [Suspect]
     Indication: BACK PAIN
     Dosage: 2 DF, BID
     Route: 048
     Dates: start: 2013, end: 2013
  2. ONE A DAY WOMENS VITACRAVES GUMMIES [Concomitant]
  3. FISH OIL [Concomitant]

REACTIONS (2)
  - Drug ineffective [None]
  - Extra dose administered [None]
